FAERS Safety Report 7179223-7 (Version None)
Quarter: 2010Q4

REPORT INFORMATION
  Report Type: 
  Country: None (occurrence: None)
  Receive Date: 20101221
  Receipt Date: 20101213
  Transmission Date: 20110411
  Serious: Yes (Other)
  Sender: FDA-Public Use
  Company Number: BR-PFIZER INC-2010109021

PATIENT
  Age: 64 Year
  Sex: Female

DRUGS (7)
  1. XALATAN [Suspect]
     Indication: GLAUCOMA
     Dosage: 3 UG, 1X/DAY (ONE DROP IN EACH EYE, ONCE DAILY)
     Route: 047
  2. LATANOPROST [Suspect]
  3. TIMOLOL MALEATE [Concomitant]
     Indication: GLAUCOMA
     Dosage: 0.5 %, UNK
  4. CRESTOR [Concomitant]
     Indication: BLOOD CHOLESTEROL INCREASED
     Dosage: 10 MG, UNK
     Dates: start: 20090101
  5. PARIET [Concomitant]
     Indication: HIATUS HERNIA
     Dosage: UNK
     Dates: start: 20090101
  6. PARIET [Concomitant]
     Indication: GASTRIC DISORDER
  7. MESALAZINE [Concomitant]
     Indication: COLITIS
     Dosage: UNK
     Dates: start: 20090101

REACTIONS (2)
  - DRUG INEFFECTIVE [None]
  - INTRAOCULAR PRESSURE INCREASED [None]
